FAERS Safety Report 9802195 (Version 1)
Quarter: 2014Q1

REPORT INFORMATION
  Report Type: Spontaneous
  Country: IT (occurrence: IT)
  Receive Date: 20140107
  Receipt Date: 20140107
  Transmission Date: 20141002
  Serious: Yes (Hospitalization)
  Sender: FDA-Public Use
  Company Number: IT-ASTRAZENECA-2013SE94609

PATIENT
  Age: 22114 Day
  Sex: Female
  Weight: 65 kg

DRUGS (4)
  1. ATENOLOL [Suspect]
     Route: 048
     Dates: start: 20130101, end: 20131113
  2. ETILTOX [Interacting]
     Indication: ALCOHOLISM
     Route: 048
     Dates: start: 20130801, end: 20131113
  3. DELORAZEPAM [Concomitant]
     Route: 048
     Dates: start: 2012
  4. STATIN [Concomitant]

REACTIONS (6)
  - Drug interaction [Unknown]
  - Hypothermia [Recovered/Resolved]
  - Blood alcohol increased [Unknown]
  - Blood creatinine increased [Recovered/Resolved]
  - Hypotension [Recovered/Resolved]
  - Syncope [Recovered/Resolved]
